FAERS Safety Report 5910446-8 (Version None)
Quarter: 2008Q4

REPORT INFORMATION
  Report Type: 
  Country: None (occurrence: None)
  Receive Date: 20081006
  Receipt Date: 20081006
  Transmission Date: 20090506
  Serious: Yes (Other)
  Sender: FDA-Public Use
  Company Number: None

PATIENT
  Age: 24 Year
  Sex: Female
  Weight: 53.5244 kg

DRUGS (4)
  1. ASMANEX TWISTHALER [Suspect]
     Indication: ASTHMA
     Dosage: 1 INHALATION  ONCE DAILY  INHAL
     Route: 055
     Dates: start: 20080101, end: 20080731
  2. TRINESSA [Concomitant]
  3. SANCTURA [Concomitant]
  4. ALBUTEROL [Concomitant]

REACTIONS (3)
  - DEPRESSION [None]
  - MOOD SWINGS [None]
  - SUICIDAL IDEATION [None]
